FAERS Safety Report 25997981 (Version 1)
Quarter: 2025Q4

REPORT INFORMATION
  Report Type: Spontaneous
  Country: US (occurrence: US)
  Receive Date: 20251105
  Receipt Date: 20251105
  Transmission Date: 20260117
  Serious: No
  Sender: LUPIN
  Company Number: US-LUPIN PHARMACEUTICALS INC.-2025-09864

PATIENT
  Age: 70 Year
  Weight: 68.027 kg

DRUGS (1)
  1. ALBUTEROL SULFATE [Suspect]
     Active Substance: ALBUTEROL SULFATE
     Indication: Respiratory tract congestion
     Dosage: 1 TO 2 PUFFS A DAY, QD

REACTIONS (3)
  - Wrong technique in product usage process [Unknown]
  - Product packaging quantity issue [Unknown]
  - Off label use [Unknown]
